FAERS Safety Report 5281096-4 (Version None)
Quarter: 2007Q1

REPORT INFORMATION
  Report Type: 
  Country: None (occurrence: None)
  Receive Date: 20061229
  Receipt Date: 20060605
  Transmission Date: 20070707
  Serious: Yes (Other)
  Sender: FDA-Public Use
  Company Number: 2006UW10684

PATIENT
  Age: 69 Year
  Sex: Male
  Weight: 81.646 kg

DRUGS (9)
  1. CRESTOR [Suspect]
     Indication: BLOOD CHOLESTEROL INCREASED
     Dosage: 5 MG PO
     Route: 048
  2. CRESTOR [Suspect]
     Indication: BLOOD CHOLESTEROL INCREASED
     Dosage: 10 MG PO
     Route: 048
  3. TRICOR [Concomitant]
  4. OMACOR [Concomitant]
  5. PERCOCET [Concomitant]
  6. DIAZEPAM [Concomitant]
  7. NEXIUM ORAL [Concomitant]
  8. UROXATRAL [Concomitant]
  9. PAXIL [Concomitant]

REACTIONS (4)
  - ARTHRALGIA [None]
  - ASTHENIA [None]
  - DIZZINESS [None]
  - WEIGHT DECREASED [None]
